FAERS Safety Report 19661692 (Version 1)
Quarter: 2021Q3

REPORT INFORMATION
  Report Type: Report from Study
  Country: FR (occurrence: FR)
  Receive Date: 20210805
  Receipt Date: 20210805
  Transmission Date: 20211014
  Serious: Yes (Hospitalization, Other)
  Sender: FDA-Public Use
  Company Number: FR-GLAXOSMITHKLINE-FRCH2021GSK051112

PATIENT
  Age: 59 Year
  Sex: Male

DRUGS (2)
  1. IBUPROFEN. [Suspect]
     Active Substance: IBUPROFEN
     Indication: PRODUCT USED FOR UNKNOWN INDICATION
     Dosage: UNK
  2. AMOXICILLIN TRIHYDRATE [Suspect]
     Active Substance: AMOXICILLIN
     Indication: PRODUCT USED FOR UNKNOWN INDICATION
     Dosage: UNK

REACTIONS (9)
  - Paraesthesia [Unknown]
  - Stevens-Johnson syndrome [Recovered/Resolved with Sequelae]
  - Neuralgia [Unknown]
  - Pain in extremity [Unknown]
  - Toxic epidermal necrolysis [Recovered/Resolved with Sequelae]
  - Electric shock sensation [Unknown]
  - Skin disorder [Unknown]
  - Skin lesion [Unknown]
  - Pain [Unknown]
